FAERS Safety Report 4622934-5 (Version None)
Quarter: 2005Q1

REPORT INFORMATION
  Report Type: 
  Country: None (occurrence: None)
  Receive Date: 20050330
  Receipt Date: 20050225
  Transmission Date: 20050727
  Serious: Yes (Other)
  Sender: FDA-Public Use
  Company Number: PHBS2005BE03031

PATIENT
  Age: 75 Year
  Sex: Female

DRUGS (13)
  1. ZOMETA [Suspect]
     Indication: BREAST CANCER
     Dosage: UNK, UNK
     Route: 042
     Dates: end: 20050304
  2. AREDIA [Suspect]
     Indication: BREAST CANCER
     Route: 042
     Dates: start: 19990601
  3. COVERSYL [Concomitant]
     Route: 065
  4. ARANESP [Concomitant]
     Route: 065
  5. CLAMOXYL [Concomitant]
     Route: 065
  6. DAFALGAN [Concomitant]
     Route: 065
  7. XYLOCAINE [Concomitant]
     Route: 065
  8. NAVELBINE [Concomitant]
     Dosage: 5 FU / 6 CYCLES
     Route: 065
     Dates: start: 19990501
  9. FEMARA [Concomitant]
     Route: 065
     Dates: start: 19991201
  10. TAXOTERE [Concomitant]
     Dosage: 6 CYCLES
     Route: 065
     Dates: start: 20000301
  11. EXEMESTANE [Concomitant]
     Route: 065
     Dates: start: 20000101
  12. HERCEPTIN [Concomitant]
     Route: 065
     Dates: start: 20001201
  13. SOLU-MEDROL [Concomitant]
     Route: 065
     Dates: start: 20001201

REACTIONS (3)
  - ACTINOMYCOSIS [None]
  - FUNGAL INFECTION [None]
  - OSTEITIS [None]
